FAERS Safety Report 8288965-1 (Version None)
Quarter: 2012Q2

REPORT INFORMATION
  Report Type: 
  Country: None (occurrence: None)
  Receive Date: 20120417
  Receipt Date: 20120409
  Transmission Date: 20120825
  Serious: Yes (Death, Life-Threatening, Hospitalization)
  Sender: FDA-Public Use
  Company Number: US-CELGENEUS-163-21880-10021006

PATIENT
  Sex: Male
  Weight: 122.5 kg

DRUGS (15)
  1. RITUXIMAB [Suspect]
     Indication: B-CELL LYMPHOMA
     Dosage: 934 MILLIGRAM
     Route: 065
     Dates: start: 20100126, end: 20100126
  2. TESSALON [Concomitant]
     Indication: COUGH
     Dosage: 200 MILLIGRAM
     Route: 048
     Dates: start: 20100205
  3. SINGULAIR [Concomitant]
     Indication: SEASONAL ALLERGY
     Dosage: 10 MILLIGRAM
     Route: 048
     Dates: start: 20090108
  4. CORTEF [Concomitant]
     Dosage: 20 MILLIGRAM
     Route: 048
     Dates: start: 20091204
  5. ASPIRIN [Concomitant]
     Dosage: 81 MILLIGRAM
     Route: 065
  6. REVLIMID [Suspect]
     Indication: B-CELL LYMPHOMA
     Dosage: 10 MILLIGRAM
     Route: 048
     Dates: start: 20100126, end: 20100211
  7. NEURONTIN [Concomitant]
     Dosage: 300 MILLIGRAM
     Route: 048
     Dates: start: 20100107
  8. NEXIUM [Concomitant]
     Dosage: 40 MILLIGRAM
     Route: 048
     Dates: start: 20090108
  9. FAMVIR [Concomitant]
     Indication: ANTIVIRAL PROPHYLAXIS
     Dosage: 250 MILLIGRAM
     Route: 048
     Dates: start: 20091008
  10. LEVAQUIN [Concomitant]
     Indication: PNEUMONITIS
  11. FLONASE [Concomitant]
     Indication: NASAL CONGESTION
     Dosage: 50 MICROGRAM
     Route: 065
     Dates: start: 20100205
  12. BUSULFAN [Suspect]
     Dosage: 71 MILLIGRAM
     Route: 041
     Dates: start: 20091110, end: 20091117
  13. FLONASE [Concomitant]
     Indication: COUGH
  14. PROAIR HFA [Concomitant]
     Indication: COUGH
     Dosage: 90 MICROGRAM
     Route: 055
     Dates: start: 20100205
  15. LEVAQUIN [Concomitant]
     Dosage: 750 MILLIGRAM
     Route: 065
     Dates: start: 20100209

REACTIONS (1)
  - PNEUMONITIS [None]
